FAERS Safety Report 24800297 (Version 1)
Quarter: 2025Q1

REPORT INFORMATION
  Report Type: Spontaneous
  Country: GB (occurrence: GB)
  Receive Date: 20250102
  Receipt Date: 20250102
  Transmission Date: 20250408
  Serious: Yes (Disabling, Other)
  Sender: EXELIXIS
  Company Number: GB-IPSEN Group, Research and Development-2024-26665

PATIENT
  Age: 44 Year
  Sex: Female
  Weight: 64 kg

DRUGS (5)
  1. CABOMETYX [Suspect]
     Active Substance: CABOZANTINIB S-MALATE
     Indication: Gastrointestinal stromal tumour
     Route: 048
     Dates: start: 20241028
  2. CABOMETYX [Suspect]
     Active Substance: CABOZANTINIB S-MALATE
     Indication: Off label use
     Route: 065
  3. PROPRANOLOL HYDROCHLORIDE [Concomitant]
     Active Substance: PROPRANOLOL HYDROCHLORIDE
  4. ESTRADIOL [Concomitant]
     Active Substance: ESTRADIOL
  5. OXYCODONE HYDROCHLORIDE [Concomitant]
     Active Substance: OXYCODONE HYDROCHLORIDE
     Indication: Analgesic therapy
     Route: 048

REACTIONS (4)
  - Hypoglycaemia [Recovering/Resolving]
  - Diarrhoea [Recovering/Resolving]
  - Fatigue [Unknown]
  - Off label use [Unknown]

NARRATIVE: CASE EVENT DATE: 20241028
